FAERS Safety Report 7373365-9 (Version None)
Quarter: 2011Q1

REPORT INFORMATION
  Report Type: 
  Country: None (occurrence: None)
  Receive Date: 20110324
  Receipt Date: 20110311
  Transmission Date: 20110831
  Serious: Yes (Other)
  Sender: FDA-Public Use
  Company Number: TW-MYLANLABS-2011S1005458

PATIENT
  Age: 57 Year
  Sex: Male

DRUGS (1)
  1. MINOCYCLINE HCL [Suspect]
     Indication: PLEURODESIS

REACTIONS (1)
  - PNEUMONITIS CHEMICAL [None]
